FAERS Safety Report 20045969 (Version 1)
Quarter: 2021Q4

REPORT INFORMATION
  Report Type: Spontaneous
  Country: US (occurrence: None)
  Receive Date: 20211108
  Receipt Date: 20211108
  Transmission Date: 20220303
  Serious: Yes (Other)
  Sender: FDA-Public Use
  Company Number: None

PATIENT
  Age: 84 Year
  Sex: Female
  Weight: 67.5 kg

DRUGS (10)
  1. HIZENTRA [Suspect]
     Active Substance: HUMAN IMMUNOGLOBULIN G
     Indication: Immunodeficiency common variable
     Dosage: OTHER FREQUENCY : ONCE EVERY 2 WKS;?
     Route: 058
  2. atorvastatin calcium 10 mg [Concomitant]
  3. azelastine 137 mcg/spray [Concomitant]
  4. BYSTOLIC [Concomitant]
     Active Substance: NEBIVOLOL HYDROCHLORIDE
  5. Colesevelam HCL 625 mg [Concomitant]
  6. Fish Oil Concentrate 1000 mg [Concomitant]
  7. HYDROCHLOROTHIAZIDE [Concomitant]
     Active Substance: HYDROCHLOROTHIAZIDE
  8. Potassium Gluconate 585 mg [Concomitant]
  9. PREMARIN [Concomitant]
     Active Substance: ESTROGENS, CONJUGATED
  10. Vitamin D2 50 mcg [Concomitant]

REACTIONS (2)
  - Pruritus [None]
  - Infusion related reaction [None]

NARRATIVE: CASE EVENT DATE: 20211025
